FAERS Safety Report 5324609-6 (Version None)
Quarter: 2007Q2

REPORT INFORMATION
  Report Type: 
  Country: None (occurrence: None)
  Receive Date: 20070508
  Receipt Date: 20070425
  Transmission Date: 20071010
  Serious: Yes (Other)
  Sender: FDA-Public Use
  Company Number: 155775ISR

PATIENT

DRUGS (2)
  1. PACLITAXEL [Suspect]
     Indication: BREAST NEOPLASM
     Dosage: 241 MG INTRAVENOUS (NOT OTHERWISE SPECIFIED)
     Route: 042
  2. GEMCITABINE [Concomitant]

REACTIONS (6)
  - CYANOSIS [None]
  - HYPERTENSION [None]
  - MALAISE [None]
  - OXYGEN SATURATION DECREASED [None]
  - PETIT MAL EPILEPSY [None]
  - TACHYCARDIA [None]
